FAERS Safety Report 19173569 (Version 1)
Quarter: 2021Q2

REPORT INFORMATION
  Report Type: Report from Study
  Country: NO (occurrence: NO)
  Receive Date: 20210423
  Receipt Date: 20210423
  Transmission Date: 20210717
  Serious: Yes (Life-Threatening, Hospitalization)
  Sender: FDA-Public Use
  Company Number: NO-WORLDWIDE CLINICAL TRIALS-2020-NO-000137

PATIENT
  Age: 54 Year
  Sex: Female
  Weight: 71 kg

DRUGS (13)
  1. VITAMIN B12 [Concomitant]
     Active Substance: CYANOCOBALAMIN
     Indication: VITAMIN B12 DEFICIENCY
     Dosage: 2 TABLETS, QD
     Route: 048
     Dates: start: 202002, end: 202004
  2. LEVAXIN [Concomitant]
     Active Substance: LEVOTHYROXINE SODIUM
     Indication: HYPOTHYROIDISM
     Dosage: 125 UG, QD
     Route: 048
     Dates: start: 200305, end: 202004
  3. NUTRIDRINK COMPACT [Concomitant]
     Indication: DECREASED APPETITE
     Dosage: 125 MILLILITER, OTHER, BETWEEN MEALS
     Route: 048
     Dates: start: 202003
  4. DCC?2618 [Suspect]
     Active Substance: RIPRETINIB
     Indication: GASTROINTESTINAL STROMAL TUMOUR
     Dosage: 150 MILLIGRAM, QD
     Route: 048
     Dates: start: 20200303, end: 20200310
  5. METOCLOPRAMIDE. [Concomitant]
     Active Substance: METOCLOPRAMIDE
     Indication: NAUSEA
     Dosage: 10 MG, MAX 3 TIMES PER DAY
     Route: 048
     Dates: start: 20180324, end: 202005
  6. MORPHINE [Concomitant]
     Active Substance: MORPHINE
     Indication: TUMOUR PAIN
     Dosage: 10 MG, MAX 6 TIMES PER DAY
     Route: 048
     Dates: start: 20200227, end: 202004
  7. DCC?2618 [Suspect]
     Active Substance: RIPRETINIB
     Dosage: 150 MILLIGRAM, QD
     Route: 048
     Dates: start: 20200330, end: 20201002
  8. NUTRIDRINK PROTEIN [Concomitant]
     Indication: DECREASED APPETITE
     Dosage: 200 MILLILITER, OTHER, BETWEEN MEALS
     Route: 048
     Dates: start: 202003
  9. MAGNESIUM [Concomitant]
     Active Substance: MAGNESIUM
     Indication: MUSCLE SPASMS
     Dosage: 2 TABLETS, QD
     Route: 048
     Dates: start: 201907, end: 20200506
  10. NUTRIDRINK [Concomitant]
     Active Substance: CARBOHYDRATES\FATTY ACIDS\MINERALS\PROTEIN\VITAMINS
     Indication: DECREASED APPETITE
     Dosage: 200 MILLILITER, OTHER, BETWEEN MEALS
     Route: 048
     Dates: start: 202003
  11. ONDANSETRON [Concomitant]
     Active Substance: ONDANSETRON
     Indication: NAUSEA
     Dosage: 8 MG, MAX TWICE PER DAY
     Route: 048
     Dates: start: 20180324, end: 202004
  12. LAXOBERAL [Concomitant]
     Active Substance: SODIUM PICOSULFATE
     Indication: CONSTIPATION
     Dosage: 10 DROPS, 2 TIMES PER DAY, PRN
     Route: 048
     Dates: start: 20200303, end: 202005
  13. DUPHALAC [Concomitant]
     Active Substance: LACTULOSE
     Indication: CONSTIPATION
     Dosage: 15 ML, MAX 4 TIMES PER DAY
     Route: 048
     Dates: start: 20200303, end: 202005

REACTIONS (2)
  - General physical health deterioration [Recovered/Resolved]
  - Large intestine perforation [Recovered/Resolved]

NARRATIVE: CASE EVENT DATE: 20200304
